FAERS Safety Report 10666720 (Version 3)
Quarter: 2015Q1

REPORT INFORMATION
  Report Type: Report from Study
  Country: JP (occurrence: JP)
  Receive Date: 20141222
  Receipt Date: 20150130
  Transmission Date: 20150720
  Serious: Yes (Death)
  Sender: FDA-Public Use
  Company Number: JP-PFIZER INC-2014351781

PATIENT
  Age: 49 Year
  Sex: Male

DRUGS (2)
  1. FAMOTIDINE. [Concomitant]
     Active Substance: FAMOTIDINE
     Indication: GASTRITIS PROPHYLAXIS
     Dosage: 20 MG, UNK
     Dates: start: 20141116
  2. FOSPHENYTOIN SODIUM. [Suspect]
     Active Substance: FOSPHENYTOIN SODIUM
     Indication: CONVULSION PROPHYLAXIS
     Dosage: 750 MG/BODY, 25 MG/MIN, 0.9% PHYSIOLOGICAL SALINE, DILUTION RATIO 1:10
     Dates: start: 20141116

REACTIONS (2)
  - Brain midline shift [Fatal]
  - Brain oedema [Fatal]

NARRATIVE: CASE EVENT DATE: 201411
